FAERS Safety Report 8460760-X (Version None)
Quarter: 2012Q2

REPORT INFORMATION
  Report Type: 
  Country: None (occurrence: None)
  Receive Date: 20120622
  Receipt Date: 20120614
  Transmission Date: 20120825
  Serious: Yes (Other)
  Sender: FDA-Public Use
  Company Number: RU-ALLERGAN-1208384US

PATIENT
  Age: 58 Year
  Sex: Female
  Weight: 67 kg

DRUGS (3)
  1. METOPROLOL TARTRATE [Concomitant]
     Indication: HYPERTENSION
     Dosage: 50 MG, UNKNOWN
     Route: 065
  2. ALPHAGAN P [Suspect]
     Indication: OPEN ANGLE GLAUCOMA
     Dosage: 1 GTT, SINGLE
     Route: 047
     Dates: start: 20120606, end: 20120606
  3. ENALAPRIL MALEATE [Concomitant]
     Indication: HYPERTENSION
     Dosage: 5 MG, UNKNOWN
     Route: 065

REACTIONS (3)
  - EYE IRRITATION [None]
  - TACHYCARDIA [None]
  - HYPERTENSIVE CRISIS [None]
